FAERS Safety Report 8613257-8 (Version None)
Quarter: 2012Q3

REPORT INFORMATION
  Report Type: 
  Country: None (occurrence: None)
  Receive Date: 20120822
  Receipt Date: 20120802
  Transmission Date: 20120928
  Serious: Yes (Hospitalization, Disabling, Other)
  Sender: FDA-Public Use
  Company Number: US-009507513-1203USA01080

PATIENT

DRUGS (21)
  1. FOSAMAX [Suspect]
     Indication: BONE DENSITY DECREASED
     Dosage: 70 MG, QW
     Route: 048
     Dates: start: 20040823, end: 20051207
  2. BONIVA [Suspect]
     Dosage: 3 UNK, UNK
     Dates: start: 20070813, end: 20080225
  3. BONIVA [Suspect]
     Dosage: 3 UNK, UNK
     Dates: start: 20090527
  4. DICYCLOMINE HYDROCHLORIDE [Concomitant]
     Indication: IRRITABLE BOWEL SYNDROME
     Dosage: UNK
     Dates: start: 20030801
  5. BONIVA [Suspect]
     Indication: OSTEOPENIA
     Dosage: 150 MG, UNK
     Dates: start: 20060120, end: 20070717
  6. BONIVA [Suspect]
     Indication: OSTEOPOROSIS
     Dosage: 150 MG/KG, UNK
     Dates: start: 20081202, end: 20110902
  7. BONIVA [Suspect]
     Dosage: 3 UNK, UNK
     Dates: start: 20080924
  8. KADIAN [Concomitant]
     Indication: PAIN
     Dosage: UNK
     Dates: start: 20040601, end: 20080801
  9. HORMONES (UNSPECIFIED) [Concomitant]
  10. VIOXX [Concomitant]
     Indication: PAIN
     Dosage: UNK
     Dates: start: 20030226
  11. FOSAMAX [Suspect]
     Indication: OSTEOPENIA
  12. LAMICTAL [Concomitant]
     Indication: DEPRESSION
     Dosage: UNK
     Dates: start: 20040401, end: 20080301
  13. DARVOCET-N 50 [Concomitant]
     Indication: PAIN
  14. ACIPHEX [Concomitant]
     Indication: GASTROOESOPHAGEAL REFLUX DISEASE
     Dosage: UNK
     Dates: start: 20030501, end: 20070101
  15. BONIVA [Suspect]
     Dosage: 3 UNK, UNK
     Dates: start: 20080523
  16. AMBIEN [Concomitant]
     Indication: INSOMNIA
     Dosage: UNK
     Dates: start: 20000501, end: 20070501
  17. FLUVOXAMINE MALEATE [Concomitant]
     Indication: OBSESSIVE-COMPULSIVE DISORDER
     Dosage: UNK
     Dates: start: 20000501, end: 20090301
  18. HUMIRA [Concomitant]
     Indication: ARTHRITIS
     Dosage: UNK
     Dates: start: 20040301, end: 20050401
  19. HYDROCODONE [Concomitant]
     Indication: PAIN
     Dosage: UNK
     Dates: start: 20010501, end: 20090201
  20. OXYCODONE HCL [Concomitant]
     Indication: PAIN
     Dosage: UNK
     Dates: start: 20010701, end: 20070601
  21. HYDROXYCHLOROQUINE SULFATE [Concomitant]
     Indication: SYSTEMIC LUPUS ERYTHEMATOSUS
     Dosage: UNK
     Dates: start: 20030901, end: 20050301

REACTIONS (73)
  - PRESYNCOPE [None]
  - SPINAL OSTEOARTHRITIS [None]
  - SINUS DISORDER [None]
  - CONDITION AGGRAVATED [None]
  - FUNGAL INFECTION [None]
  - DIARRHOEA [None]
  - BACK PAIN [None]
  - CYST [None]
  - BURSITIS [None]
  - ARTHRALGIA [None]
  - DEPRESSION [None]
  - FATIGUE [None]
  - MEMORY IMPAIRMENT [None]
  - COLITIS [None]
  - INTERVERTEBRAL DISC PROTRUSION [None]
  - LIGAMENT SPRAIN [None]
  - SKIN INFECTION [None]
  - URINARY TRACT INFECTION [None]
  - WOUND INFECTION [None]
  - BLOOD ALKALINE PHOSPHATASE INCREASED [None]
  - OEDEMA PERIPHERAL [None]
  - PAIN IN EXTREMITY [None]
  - OSTEOARTHRITIS [None]
  - LUMBAR RADICULOPATHY [None]
  - FEMUR FRACTURE [None]
  - WOUND DEHISCENCE [None]
  - HYPERPARATHYROIDISM [None]
  - ARTHROSCOPY [None]
  - HYPERTENSION [None]
  - EPISTAXIS [None]
  - DRUG DEPENDENCE [None]
  - DEBRIDEMENT [None]
  - DRUG WITHDRAWAL SYNDROME [None]
  - VOMITING [None]
  - SYNCOPE [None]
  - DRUG INEFFECTIVE [None]
  - LOW TURNOVER OSTEOPATHY [None]
  - ROTATOR CUFF REPAIR [None]
  - INTERVERTEBRAL DISC OPERATION [None]
  - MENISCUS LESION [None]
  - SPINAL COMPRESSION FRACTURE [None]
  - HEAD INJURY [None]
  - ANXIETY [None]
  - MUSCULOSKELETAL PAIN [None]
  - RASH PRURITIC [None]
  - NAUSEA [None]
  - FACIAL BONES FRACTURE [None]
  - HEPATIC STEATOSIS [None]
  - HYPOTHYROIDISM [None]
  - SCIATICA [None]
  - DYSPEPSIA [None]
  - NECK PAIN [None]
  - ABDOMINAL PAIN [None]
  - LATEX ALLERGY [None]
  - SUICIDE ATTEMPT [None]
  - CALCIUM DEFICIENCY [None]
  - BONE DISORDER [None]
  - PAIN [None]
  - LOSS OF CONSCIOUSNESS [None]
  - HEART RATE IRREGULAR [None]
  - OSTEOMALACIA [None]
  - HYPOTENSION [None]
  - OESOPHAGEAL DILATATION [None]
  - DRUG TOLERANCE [None]
  - VERTIGO [None]
  - CONSTIPATION [None]
  - OSTEONECROSIS [None]
  - VITAMIN D DEFICIENCY [None]
  - DYSPNOEA [None]
  - MUSCLE STRAIN [None]
  - DIVERTICULUM [None]
  - ANAEMIA POSTOPERATIVE [None]
  - CARDIAC DISORDER [None]
